FAERS Safety Report 7748096-3 (Version None)
Quarter: 2011Q3

REPORT INFORMATION
  Report Type: 
  Country: None (occurrence: None)
  Receive Date: 20110913
  Receipt Date: 20110831
  Transmission Date: 20111222
  Serious: Yes (Hospitalization)
  Sender: FDA-Public Use
  Company Number: JP-ABBOTT-10P-087-0689701-00

PATIENT
  Sex: Female

DRUGS (6)
  1. TAMOXIFEN CITRATE [Concomitant]
     Indication: BREAST CANCER
     Route: 048
     Dates: start: 20070206
  2. MENBIT [Concomitant]
     Indication: PRODUCT USED FOR UNKNOWN INDICATION
     Route: 048
     Dates: start: 19990801
  3. NEO-MERCAZOLE TAB [Concomitant]
     Indication: PRODUCT USED FOR UNKNOWN INDICATION
     Dates: start: 20061120
  4. LEUPROLIDE ACETATE [Suspect]
     Indication: BREAST CANCER
     Route: 058
     Dates: start: 20061225
  5. THEOPHYLLINE [Concomitant]
     Indication: PRODUCT USED FOR UNKNOWN INDICATION
     Dates: start: 20071225
  6. MINZAIN [Concomitant]
     Indication: PRODUCT USED FOR UNKNOWN INDICATION
     Route: 048
     Dates: start: 19990801

REACTIONS (11)
  - HEADACHE [None]
  - PATELLA FRACTURE [None]
  - NECK PAIN [None]
  - MENISCUS LESION [None]
  - CONTUSION [None]
  - LACERATION [None]
  - LACRIMAL DISORDER [None]
  - ROAD TRAFFIC ACCIDENT [None]
  - FOOT FRACTURE [None]
  - STERNAL FRACTURE [None]
  - DRY EYE [None]
